FAERS Safety Report 20310455 (Version 3)
Quarter: 2022Q1

REPORT INFORMATION
  Report Type: Spontaneous
  Country: DE (occurrence: DE)
  Receive Date: 20220107
  Receipt Date: 20220120
  Transmission Date: 20220423
  Serious: Yes (Hospitalization, Other)
  Sender: FDA-Public Use
  Company Number: DE-TEVA-2022-DE-1997083

PATIENT
  Age: 45 Year
  Sex: Female

DRUGS (4)
  1. COPAXONE [Suspect]
     Active Substance: GLATIRAMER ACETATE
     Indication: Multiple sclerosis
     Dates: start: 20211224
  2. Paroxetine 30 mg [Concomitant]
     Indication: Depression
  3. Ramiplus [Concomitant]
  4. RAMIPRIL [Concomitant]
     Active Substance: RAMIPRIL
     Indication: Blood pressure increased

REACTIONS (21)
  - Pain [Recovering/Resolving]
  - Vomiting [Unknown]
  - Anaphylactic reaction [Unknown]
  - Dehydration [Unknown]
  - Presyncope [Unknown]
  - Asthenia [Not Recovered/Not Resolved]
  - Cystitis [Unknown]
  - Hyperhidrosis [Not Recovered/Not Resolved]
  - Nausea [Unknown]
  - Decreased appetite [Not Recovered/Not Resolved]
  - Muscle tightness [Not Recovered/Not Resolved]
  - Chills [Recovering/Resolving]
  - Muscle spasms [Unknown]
  - Headache [Not Recovered/Not Resolved]
  - Influenza like illness [Unknown]
  - Fatigue [Unknown]
  - Body temperature increased [Recovering/Resolving]
  - Myalgia [Recovering/Resolving]
  - Arthralgia [Recovering/Resolving]
  - Fatigue [Not Recovered/Not Resolved]
  - Allergy to chemicals [Unknown]

NARRATIVE: CASE EVENT DATE: 20211201
